FAERS Safety Report 19402366 (Version 1)
Quarter: 2021Q2

REPORT INFORMATION
  Report Type: Report from Study
  Country: CL (occurrence: CL)
  Receive Date: 20210610
  Receipt Date: 20210610
  Transmission Date: 20210717
  Serious: Yes (Other)
  Sender: FDA-Public Use
  Company Number: PHHY2018CL195139

PATIENT
  Age: 51 Year
  Sex: Female

DRUGS (2)
  1. LETROZOLE. [Suspect]
     Active Substance: LETROZOLE
     Indication: PRODUCT USED FOR UNKNOWN INDICATION
     Dosage: UNK
     Route: 065
  2. KISQALI [Suspect]
     Active Substance: RIBOCICLIB
     Indication: BREAST CANCER
     Dosage: 600 MG, QD
     Route: 048
     Dates: start: 20181102

REACTIONS (28)
  - Lipids abnormal [Unknown]
  - Glomerular filtration rate decreased [Unknown]
  - White blood cell count decreased [Unknown]
  - Intermediate density lipoprotein increased [Unknown]
  - Neutrophil count decreased [Unknown]
  - Drug ineffective [Unknown]
  - Gait disturbance [Unknown]
  - Low density lipoprotein increased [Unknown]
  - Red blood cell count decreased [Unknown]
  - Limb mass [Unknown]
  - Red cell distribution width increased [Unknown]
  - Very low density lipoprotein increased [Unknown]
  - Lymphocyte count decreased [Unknown]
  - Bone pain [Unknown]
  - Macrocytosis [Unknown]
  - Mean cell volume increased [Unknown]
  - Blood cholesterol increased [Unknown]
  - Blood triglycerides abnormal [Unknown]
  - Mean cell haemoglobin increased [Unknown]
  - High density lipoprotein decreased [Unknown]
  - Alanine aminotransferase increased [Unknown]
  - Aspartate aminotransferase increased [Unknown]
  - Malaise [Unknown]
  - Vein disorder [Unknown]
  - Bone cancer [Unknown]
  - Anisocytosis [Unknown]
  - Blood uric acid increased [Unknown]
  - Blood glucose increased [Unknown]

NARRATIVE: CASE EVENT DATE: 201812
